FAERS Safety Report 26021133 (Version 1)
Quarter: 2025Q4

REPORT INFORMATION
  Report Type: Spontaneous
  Country: US (occurrence: None)
  Receive Date: 20251110
  Receipt Date: 20251110
  Transmission Date: 20260118
  Serious: Yes (Hospitalization)
  Sender: AMERICAN REGENT
  Company Number: US-AMERICAN REGENT INC-2025003992

PATIENT
  Age: 34 Year
  Sex: Male
  Weight: 85 kg

DRUGS (2)
  1. VENOFER [Suspect]
     Active Substance: IRON SUCROSE
     Indication: Product used for unknown indication
     Dosage: 100 MILLIGRAM
  2. MIRCERA [Suspect]
     Active Substance: METHOXY POLYETHYLENE GLYCOL-EPOETIN BETA
     Indication: Anaemia of chronic disease
     Dosage: 150 MICROGRAM, EVERY 2 WEEKS

REACTIONS (5)
  - Drug hypersensitivity [Unknown]
  - Throat tightness [Unknown]
  - Flushing [Unknown]
  - Flushing [Unknown]
  - Dyspnoea [Unknown]

NARRATIVE: CASE EVENT DATE: 20251022
